FAERS Safety Report 7219626-5 (Version None)
Quarter: 2010Q4

REPORT INFORMATION
  Report Type: 
  Country: None (occurrence: None)
  Receive Date: 20101126
  Receipt Date: 20100823
  Transmission Date: 20110411
  Serious: No
  Sender: FDA-Public Use
  Company Number: 314130

PATIENT
  Age: 66 Year
  Sex: Male

DRUGS (8)
  1. VICTOZA [Suspect]
     Indication: TYPE 2 DIABETES MELLITUS
     Dosage: 1.2 MG, QD, SUBCUTANEOUS
     Route: 058
  2. AVALIDE [Concomitant]
  3. AVANDIA [Concomitant]
  4. DILTIAZEM [Concomitant]
  5. METFORMIN HCL [Concomitant]
  6. SIMVASTATIN [Concomitant]
  7. TAMSULOSIN HCL [Concomitant]
  8. GLIPIZIDE [Concomitant]

REACTIONS (4)
  - NAUSEA [None]
  - RETCHING [None]
  - SWELLING FACE [None]
  - VOMITING [None]
